FAERS Safety Report 6361843-0 (Version None)
Quarter: 2009Q3

REPORT INFORMATION
  Report Type: 
  Country: None (occurrence: None)
  Receive Date: 20090918
  Receipt Date: 20090907
  Transmission Date: 20100115
  Serious: Yes (Hospitalization)
  Sender: FDA-Public Use
  Company Number: JP-JNJFOC-20090900458

PATIENT
  Sex: Male
  Weight: 55.8 kg

DRUGS (11)
  1. TOPIRAMATE [Suspect]
     Route: 048
  2. TOPIRAMATE [Suspect]
     Route: 048
  3. TOPIRAMATE [Suspect]
     Route: 048
  4. TOPIRAMATE [Suspect]
     Route: 048
  5. TOPIRAMATE [Suspect]
     Route: 048
  6. TOPIRAMATE [Suspect]
     Route: 048
  7. TOPIRAMATE [Suspect]
     Route: 048
  8. TOPIRAMATE [Suspect]
     Indication: PARTIAL SEIZURES
     Route: 048
  9. TELESMIN [Concomitant]
     Route: 048
  10. PHENOBARBITAL [Concomitant]
  11. PHENOBARBITAL [Concomitant]

REACTIONS (2)
  - COMPLEX PARTIAL SEIZURES [None]
  - HEAT ILLNESS [None]
